FAERS Safety Report 5975075-9 (Version None)
Quarter: 2008Q4

REPORT INFORMATION
  Report Type: 
  Country: None (occurrence: None)
  Receive Date: 20081128
  Receipt Date: 20081120
  Transmission Date: 20090506
  Serious: Yes (Hospitalization)
  Sender: FDA-Public Use
  Company Number: CERZ-1000434

PATIENT
  Age: 71 Year
  Weight: 73 kg

DRUGS (1)
  1. CEREZYME [Suspect]
     Indication: GAUCHER'S DISEASE
     Dosage: 4800 U, Q2W, INTRAVENOUS; 2200 U, Q2W, INTRAVENOUS
     Route: 042
     Dates: start: 20051201

REACTIONS (1)
  - SPINAL FRACTURE [None]
